FAERS Safety Report 17677171 (Version 1)
Quarter: 2020Q2

REPORT INFORMATION
  Report Type: Spontaneous
  Country: AU (occurrence: AU)
  Receive Date: 20200416
  Receipt Date: 20200416
  Transmission Date: 20200714
  Serious: Yes (Hospitalization)
  Sender: FDA-Public Use
  Company Number: AU-VALIDUS PHARMACEUTICALS LLC-AU-2020VAL000308

PATIENT

DRUGS (11)
  1. CHLOROQUINE. [Suspect]
     Active Substance: CHLOROQUINE
     Indication: INTERSTITIAL LUNG DISEASE
     Dosage: 10 MG/KG, QD
     Route: 048
  2. CEFOTAXIME SODIUM [Suspect]
     Active Substance: CEFOTAXIME SODIUM
     Indication: INTERSTITIAL LUNG DISEASE
     Dosage: UNK
     Route: 065
  3. TOBRAMYCIN. [Suspect]
     Active Substance: TOBRAMYCIN
     Indication: INTERSTITIAL LUNG DISEASE
     Dosage: UNK
     Route: 065
  4. IMMUNOGLOBULIN                     /07494701/ [Suspect]
     Active Substance: IMMUNE GLOBULIN NOS
     Indication: INTERSTITIAL LUNG DISEASE
     Dosage: UNK
     Route: 042
  5. METHYLPREDNISOLONE. [Suspect]
     Active Substance: METHYLPREDNISOLONE
     Indication: INTERSTITIAL LUNG DISEASE
     Dosage: HIGH INTRAVENOUS DOSE
     Route: 042
  6. FLUCLOXACILLIN [Suspect]
     Active Substance: FLUCLOXACILLIN
     Indication: INTERSTITIAL LUNG DISEASE
     Dosage: UNK
     Route: 065
  7. HYDROCORTISONE. [Concomitant]
     Active Substance: HYDROCORTISONE
     Indication: PRODUCT USED FOR UNKNOWN INDICATION
     Dosage: UNK
  8. AMPICILLIN [Concomitant]
     Active Substance: AMPICILLIN
     Indication: PRODUCT USED FOR UNKNOWN INDICATION
     Dosage: UNK
  9. ERYTHROMYCIN. [Concomitant]
     Active Substance: ERYTHROMYCIN
     Indication: PRODUCT USED FOR UNKNOWN INDICATION
     Dosage: UNK
  10. PREDNISOLONE. [Suspect]
     Active Substance: PREDNISOLONE
     Indication: INTERSTITIAL LUNG DISEASE
     Dosage: 1 MG/KG, QD
     Route: 048
  11. ALBUTEROL                          /00139501/ [Concomitant]
     Active Substance: ALBUTEROL
     Indication: PRODUCT USED FOR UNKNOWN INDICATION
     Dosage: UNK

REACTIONS (4)
  - Tachypnoea [Recovering/Resolving]
  - Off label use [Unknown]
  - Drug ineffective [Unknown]
  - Disease progression [Recovering/Resolving]
